FAERS Safety Report 25318320 (Version 2)
Quarter: 2025Q3

REPORT INFORMATION
  Report Type: Spontaneous
  Country: US (occurrence: US)
  Receive Date: 20250515
  Receipt Date: 20250704
  Transmission Date: 20251021
  Serious: Yes (Death)
  Sender: CIPLA
  Company Number: US-CIPLA LTD.-2025US05528

PATIENT

DRUGS (1)
  1. LENALIDOMIDE [Suspect]
     Active Substance: LENALIDOMIDE
     Indication: Product used for unknown indication
     Route: 065
     Dates: start: 202211

REACTIONS (3)
  - COVID-19 [Fatal]
  - Adverse event [Fatal]
  - Influenza A virus test positive [Unknown]
